FAERS Safety Report 10611400 (Version 1)
Quarter: 2014Q4

REPORT INFORMATION
  Report Type: Spontaneous
  Country: IT (occurrence: None)
  Receive Date: 20141124
  Receipt Date: 20141124
  Transmission Date: 20150529
  Serious: Yes (Death, Life-Threatening)
  Sender: FDA-Public Use
  Company Number: KAD201411-001480

PATIENT
  Age: 69 Year
  Sex: Male
  Weight: 70 kg

DRUGS (3)
  1. INCIVO [Suspect]
     Active Substance: TELAPREVIR
     Indication: ANTIVIRAL TREATMENT
     Route: 048
     Dates: start: 20140325, end: 20140503
  2. PEGINTERFERON LAMBDA-1A [Suspect]
     Active Substance: PEGINTERFERON LAMBDA-1A
     Indication: ANTIVIRAL TREATMENT
     Dosage: 1 UNIT/WEEK
     Route: 058
     Dates: start: 20140325, end: 20140503
  3. RIBAVIRIN (RIBAVIRIN) [Suspect]
     Active Substance: RIBAVIRIN
     Indication: ANTIVIRAL TREATMENT
     Route: 048
     Dates: start: 20140325, end: 20140503

REACTIONS (13)
  - Rash erythematous [None]
  - Confusional state [None]
  - Encephalopathy [None]
  - Malaise [None]
  - Ascites [None]
  - Rash [None]
  - Syncope [None]
  - Decreased appetite [None]
  - Cholestasis [None]
  - Blood glucose increased [None]
  - Pyrexia [None]
  - Hepatic failure [None]
  - Loss of consciousness [None]

NARRATIVE: CASE EVENT DATE: 20140407
